FAERS Safety Report 5168652-9 (Version None)
Quarter: 2006Q4

REPORT INFORMATION
  Report Type: 
  Country: None (occurrence: None)
  Receive Date: 20061211
  Receipt Date: 20061201
  Transmission Date: 20070319
  Serious: Yes (Hospitalization)
  Sender: FDA-Public Use
  Company Number: US-JNJFOC-20061200804

PATIENT
  Sex: Female

DRUGS (11)
  1. INFLIXIMAB [Suspect]
     Indication: RHEUMATOID ARTHRITIS
     Route: 042
  2. PREDNISONE TAB [Concomitant]
  3. METHOTREXATE [Concomitant]
  4. LESCOL [Concomitant]
  5. PEPCID [Concomitant]
  6. GABAPENTIN [Concomitant]
  7. ACTONEL [Concomitant]
  8. HUMULIN R [Concomitant]
  9. CALTRATE [Concomitant]
  10. TYLENOL [Concomitant]
  11. TYLENOL PM [Concomitant]

REACTIONS (3)
  - DEHYDRATION [None]
  - GASTRITIS EROSIVE [None]
  - GASTROENTERITIS [None]
